FAERS Safety Report 4688866-1 (Version None)
Quarter: 2005Q2

REPORT INFORMATION
  Report Type: 
  Country: None (occurrence: None)
  Receive Date: 20050610
  Receipt Date: 20050519
  Transmission Date: 20051028
  Serious: Yes (Other)
  Sender: FDA-Public Use
  Company Number: 2005SS000012

PATIENT
  Age: 13 Year
  Sex: Male
  Weight: 19.0511 kg

DRUGS (1)
  1. MYOBLOC [Suspect]
     Indication: CEREBRAL PALSY
     Dosage: 15000 UNITS; X1; IM
     Route: 030
     Dates: start: 20050316, end: 20050316

REACTIONS (7)
  - ACCIDENTAL OVERDOSE [None]
  - DRY MOUTH [None]
  - DRY THROAT [None]
  - DYSPNOEA [None]
  - FALL [None]
  - OEDEMA [None]
  - STRIDOR [None]
